FAERS Safety Report 20832016 (Version 1)
Quarter: 2022Q2

REPORT INFORMATION
  Report Type: 
  Country: None (occurrence: None)
  Receive Date: 20220516
  Receipt Date: 20220516
  Transmission Date: 20220720
  Serious: No
  Sender: FDA-Public Use
  Company Number: ROCHE-3095037

PATIENT
  Age: 35 Year
  Weight: 106.69 kg

DRUGS (8)
  1. OCREVUS [Suspect]
     Active Substance: OCRELIZUMAB
  2. OCREVUS [Suspect]
     Active Substance: OCRELIZUMAB
  3. BENADRYL [Concomitant]
     Active Substance: DIPHENHYDRAMINE HYDROCHLORIDE
  4. TYLENOL [Concomitant]
     Active Substance: ACETAMINOPHEN
  5. MEDROL [Concomitant]
     Active Substance: METHYLPREDNISOLONE
  6. MORPHINE [Concomitant]
     Active Substance: MORPHINE
  7. EPINEPHRINE [Concomitant]
     Active Substance: EPINEPHRINE
  8. PEPCID [Concomitant]
     Active Substance: FAMOTIDINE

REACTIONS (3)
  - COVID-19 [None]
  - Drug hypersensitivity [None]
  - Psoriasis [None]

NARRATIVE: CASE EVENT DATE: 20200901
